FAERS Safety Report 4371228-4 (Version None)
Quarter: 2004Q2

REPORT INFORMATION
  Report Type: 
  Country: None (occurrence: None)
  Receive Date: 20040604
  Receipt Date: 20040526
  Transmission Date: 20050107
  Serious: Yes (Other)
  Sender: FDA-Public Use
  Company Number: BR-ROCHE-369236

PATIENT
  Age: 20 Year
  Sex: Male

DRUGS (2)
  1. ROACUTAN [Suspect]
     Indication: ACNE
     Route: 048
     Dates: start: 20031115, end: 20040315
  2. ROACUTAN [Suspect]
     Route: 048
     Dates: start: 20040415

REACTIONS (4)
  - GILBERT'S SYNDROME [None]
  - MUSCLE FATIGUE [None]
  - NERVOUSNESS [None]
  - TRANSAMINASES INCREASED [None]
